FAERS Safety Report 25276278 (Version 1)
Quarter: 2025Q2

REPORT INFORMATION
  Report Type: Other
  Country: GB (occurrence: GB)
  Receive Date: 20250507
  Receipt Date: 20250507
  Transmission Date: 20250716
  Serious: Yes (Hospitalization, Other)
  Sender: GLENMARK
  Company Number: GB-MHRA-MIDB-d5d017e6-2e68-40b9-a591-502a3dad4233

PATIENT
  Age: 67 Year
  Sex: Female

DRUGS (13)
  1. OMEPRAZOLE [Suspect]
     Active Substance: OMEPRAZOLE
     Indication: Product used for unknown indication
     Route: 048
  2. INDAPAMIDE [Suspect]
     Active Substance: INDAPAMIDE
     Indication: Hypertension
     Dosage: 2.5 MILLIGRAM, QD
     Route: 048
     Dates: start: 202409
  3. LOSARTAN [Suspect]
     Active Substance: LOSARTAN
     Indication: Hypertension
     Dosage: 50 MILLIGRAM, QD
     Route: 048
  4. BISOPROLOL [Concomitant]
     Active Substance: BISOPROLOL
     Indication: Product used for unknown indication
     Dosage: 7.5 MILLIGRAM, QD
     Route: 048
     Dates: start: 20250417
  5. BACLOFEN [Concomitant]
     Active Substance: BACLOFEN
     Indication: Product used for unknown indication
     Dosage: 20 MILLIGRAM, TID (EVERY 8 HOURS)  (BACLOFEN LIQUID GASTROSTOMY 20 MG THREE TIMES A DAY)
     Route: 065
  6. BUPRENORPHINE [Concomitant]
     Active Substance: BUPRENORPHINE
     Indication: Product used for unknown indication
     Dosage: 1 DOSAGE FORM, QW (20 MCG/HOUR TOPICAL 1 PATCH ONCE A WEEK ON TUESDAY  )
     Route: 061
  7. CARBIDOPA\LEVODOPA [Concomitant]
     Active Substance: CARBIDOPA\LEVODOPA
     Indication: Product used for unknown indication
     Dosage: 1 DOSAGE FORM, TID (EVERY 8 HOURS) (12.5 MG-50 MG ORAL TABLET TABLET GASTROSTOMY 1 TABLET THREE TIME
     Route: 048
  8. MORPHINE SULFATE [Concomitant]
     Active Substance: MORPHINE SULFATE
     Indication: Pain
     Dosage: 5 MILLIGRAM, QID (EVERY 6 HOURS) (~10 MG/5 ML ORAL SOLUTION LIQUID GASTROSTOMY 5 MG FOUR TIMES A DAY
     Route: 048
  9. SENNA [Concomitant]
     Active Substance: SENNOSIDES
     Indication: Product used for unknown indication
     Dosage: 5 MILLILITER, QD (~7.5 MG/5 ML ORAL SYRUP LIQUID GASTROSTOMY 5 ML ONCE A DAY (EVENING)  )
     Route: 048
  10. LANSOPRAZOLE [Concomitant]
     Active Substance: LANSOPRAZOLE
     Indication: Product used for unknown indication
     Dosage: 15 MILLIGRAM, BID (GASTROSTOMY 15 MG TWICE A DAY)
     Route: 065
  11. LEVOTHYROXINE [Concomitant]
     Active Substance: LEVOTHYROXINE
     Indication: Product used for unknown indication
     Dosage: 75 MICROGRAM, QD
     Route: 048
  12. AMLODIPINE [Concomitant]
     Active Substance: AMLODIPINE BESYLATE
     Indication: Hypertension
     Dosage: 5 MILLIGRAM, QD
     Route: 065
     Dates: end: 202409
  13. AMLODIPINE [Concomitant]
     Active Substance: AMLODIPINE BESYLATE
     Dosage: 10 MILLIGRAM, QD
     Route: 048
     Dates: start: 202409

REACTIONS (7)
  - Osmotic demyelination syndrome [Unknown]
  - Osmotic demyelination syndrome [Unknown]
  - Confusional state [Unknown]
  - Hypokalaemia [Recovered/Resolved with Sequelae]
  - Hyponatraemia [Recovered/Resolved with Sequelae]
  - Electrolyte imbalance [Unknown]
  - Somnolence [Unknown]

NARRATIVE: CASE EVENT DATE: 20240923
